FAERS Safety Report 6854949-0 (Version None)
Quarter: 2010Q3

REPORT INFORMATION
  Report Type: 
  Country: None (occurrence: None)
  Receive Date: 20100717
  Receipt Date: 20080311
  Transmission Date: 20110219
  Serious: Yes (Other)
  Sender: FDA-Public Use
  Company Number: US-PFIZER INC-2007107459

PATIENT
  Age: 22 Year
  Sex: Male
  Weight: 114.8 kg

DRUGS (1)
  1. CHANTIX [Suspect]
     Indication: SMOKING CESSATION THERAPY
     Route: 048
     Dates: start: 20071101

REACTIONS (7)
  - AGGRESSION [None]
  - AGITATION [None]
  - DEPRESSED MOOD [None]
  - NIGHTMARE [None]
  - PERSONALITY CHANGE [None]
  - SCREAMING [None]
  - SOCIAL AVOIDANT BEHAVIOUR [None]
